FAERS Safety Report 24344324 (Version 1)
Quarter: 2024Q3

REPORT INFORMATION
  Report Type: Spontaneous
  Country: US (occurrence: None)
  Receive Date: 20240919
  Receipt Date: 20240919
  Transmission Date: 20241017
  Serious: No
  Sender: Public
  Company Number: None

PATIENT
  Age: 28 Year
  Sex: Female
  Weight: 63 kg

DRUGS (1)
  1. TRANEXAMIC ACID [Suspect]
     Active Substance: TRANEXAMIC ACID
     Indication: Menstrual disorder
     Dosage: OTHER QUANTITY : 30 TABLET(S);?OTHER FREQUENCY : 2 PILLS 3XDAY;?
     Route: 048
     Dates: start: 20240919

REACTIONS (4)
  - Dizziness [None]
  - Nausea [None]
  - Asthenia [None]
  - Dizziness [None]

NARRATIVE: CASE EVENT DATE: 20240919
